FAERS Safety Report 24946233 (Version 1)
Quarter: 2025Q1

REPORT INFORMATION
  Report Type: Spontaneous
  Country: GB (occurrence: GB)
  Receive Date: 20250210
  Receipt Date: 20250210
  Transmission Date: 20250409
  Serious: Yes (Hospitalization, Other)
  Sender: ALKEM
  Company Number: None

PATIENT
  Age: 82 Year
  Sex: Male

DRUGS (8)
  1. LINEZOLID [Suspect]
     Active Substance: LINEZOLID
     Indication: Listeriosis
     Route: 065
     Dates: start: 20211231, end: 20220111
  2. LINEZOLID [Suspect]
     Active Substance: LINEZOLID
     Dosage: 600 MILLIGRAM, BID
     Route: 048
     Dates: start: 20211110, end: 20211202
  3. LINEZOLID [Suspect]
     Active Substance: LINEZOLID
     Dosage: 600 MILLIGRAM, BID
     Route: 048
     Dates: start: 20211216, end: 20211229
  4. DEXAMETHASONE [Concomitant]
     Active Substance: DEXAMETHASONE
     Indication: Listeriosis
     Dosage: 2 GRAM, BID
     Route: 065
  5. DEXAMETHASONE [Concomitant]
     Active Substance: DEXAMETHASONE
     Route: 065
     Dates: start: 20211110, end: 20220111
  6. DEXAMETHASONE [Concomitant]
     Active Substance: DEXAMETHASONE
     Dosage: 16 MILLIGRAM, QD
     Route: 065
  7. MEROPENEM [Concomitant]
     Active Substance: MEROPENEM
     Indication: Listeriosis
     Route: 065
     Dates: start: 20211110, end: 20220111
  8. MEROPENEM [Concomitant]
     Active Substance: MEROPENEM
     Route: 065

REACTIONS (2)
  - Myelosuppression [Recovered/Resolved]
  - Off label use [Unknown]

NARRATIVE: CASE EVENT DATE: 20211110
